FAERS Safety Report 9261299 (Version 1)
Quarter: 2013Q2

REPORT INFORMATION
  Report Type: Spontaneous
  Country: ES (occurrence: ES)
  Receive Date: 20130429
  Receipt Date: 20130429
  Transmission Date: 20140414
  Serious: Yes (Other)
  Sender: FDA-Public Use
  Company Number: PHHY2013ES038909

PATIENT
  Age: 30 Year
  Sex: Male

DRUGS (2)
  1. CICLOSPORIN [Suspect]
     Indication: GRAFT VERSUS HOST DISEASE
     Dosage: 1.5 MG/KG, BID
  2. METHOTREXATE [Concomitant]
     Indication: GRAFT VERSUS HOST DISEASE

REACTIONS (10)
  - Graft versus host disease [Recovered/Resolved]
  - Pain [Recovered/Resolved]
  - Palmar erythema [Recovered/Resolved]
  - Skin lesion [Recovered/Resolved]
  - Skin burning sensation [Recovered/Resolved]
  - Erythema [Recovered/Resolved]
  - Rash maculo-papular [Recovered/Resolved]
  - Rash morbilliform [Recovered/Resolved]
  - Rash [Recovered/Resolved]
  - Concomitant disease aggravated [Recovered/Resolved]
